FAERS Safety Report 8382921-0 (Version None)
Quarter: 2012Q2

REPORT INFORMATION
  Report Type: 
  Country: None (occurrence: None)
  Receive Date: 20120524
  Receipt Date: 20120514
  Transmission Date: 20120825
  Serious: Yes (Hospitalization)
  Sender: FDA-Public Use
  Company Number: JP-PFIZER INC-2012107207

PATIENT
  Age: 64 Year
  Sex: Male
  Weight: 80 kg

DRUGS (8)
  1. CANDESARTAN CILEXETIL [Concomitant]
     Indication: HYPERTENSION
     Dosage: 12 MG, 1X/DAY
     Route: 048
     Dates: start: 20100416
  2. LORAZEPAM [Concomitant]
     Indication: ANXIETY DISORDER
     Dosage: 0.5 MG, 1X/DAY
     Route: 048
  3. AXITINIB [Suspect]
     Indication: METASTATIC RENAL CELL CARCINOMA
     Dosage: 5 MG, 2X/DAY
     Route: 048
     Dates: start: 20091002
  4. AXITINIB [Suspect]
     Dosage: 1 MG, 2X/DAY
     Route: 048
     Dates: end: 20120501
  5. ALLOPURINOL [Concomitant]
     Indication: HYPERURICAEMIA
     Dosage: 200 MG, 2X/DAY
     Route: 048
  6. VITAMIN B12 [Concomitant]
     Indication: DIPLOPIA
     Dosage: 1500 UG, 3X/DAY
     Route: 048
     Dates: start: 20111024
  7. ADALAT [Concomitant]
     Indication: HYPERTENSION
     Dosage: 20 MG, AS NEEDED
     Route: 048
     Dates: start: 20110218
  8. AMLODIPINE [Concomitant]
     Indication: HYPERTENSION
     Dosage: 5 MG, AS NEEDED
     Route: 048
     Dates: start: 20100611

REACTIONS (1)
  - MYOCARDIAL ISCHAEMIA [None]
